FAERS Safety Report 4591059-X (Version None)
Quarter: 2005Q1

REPORT INFORMATION
  Report Type: 
  Country: None (occurrence: None)
  Receive Date: 20050222
  Receipt Date: 20050222
  Transmission Date: 20050727
  Serious: Yes (Hospitalization)
  Sender: FDA-Public Use
  Company Number: None

PATIENT
  Age: 58 Year
  Sex: Male

DRUGS (1)
  1. FOSINOPRIL [Suspect]
     Indication: HYPERTENSION
     Dosage: 40 MG DAILY ORAL
     Route: 048
     Dates: start: 20040923, end: 20041116

REACTIONS (1)
  - EOSINOPHILIA [None]
